FAERS Safety Report 5734553-8 (Version None)
Quarter: 2008Q2

REPORT INFORMATION
  Report Type: 
  Country: None (occurrence: None)
  Receive Date: 20080508
  Receipt Date: 20080501
  Transmission Date: 20081010
  Serious: Yes (Other)
  Sender: FDA-Public Use
  Company Number: 163-20785-08050141

PATIENT
  Age: 57 Year
  Sex: Male

DRUGS (3)
  1. THALOMID [Suspect]
     Indication: MULTIPLE MYELOMA
     Dosage: 150 MG, ORAL; 100 MG, 1 IN 1 D, ORAL; 50-200 MG, DAILY, ORAL
     Route: 048
     Dates: start: 20060901, end: 20070801
  2. THALOMID [Suspect]
     Indication: MULTIPLE MYELOMA
     Dosage: 150 MG, ORAL; 100 MG, 1 IN 1 D, ORAL; 50-200 MG, DAILY, ORAL
     Route: 048
     Dates: start: 20071201
  3. THALOMID [Suspect]
     Indication: MULTIPLE MYELOMA
     Dosage: 150 MG, ORAL; 100 MG, 1 IN 1 D, ORAL; 50-200 MG, DAILY, ORAL
     Route: 048
     Dates: start: 20080501

REACTIONS (2)
  - ABASIA [None]
  - NEUROPATHY PERIPHERAL [None]
